FAERS Safety Report 5280390-0 (Version None)
Quarter: 2007Q1

REPORT INFORMATION
  Report Type: 
  Country: None (occurrence: None)
  Receive Date: 20061229
  Receipt Date: 20060814
  Transmission Date: 20070707
  Serious: Yes (Other)
  Sender: FDA-Public Use
  Company Number: 2006UW15589

PATIENT
  Age: 49 Year
  Sex: Female
  Weight: 55.791 kg

DRUGS (13)
  1. CRESTOR [Suspect]
     Indication: BLOOD CHOLESTEROL INCREASED
     Dosage: 10 MG QD PO
     Route: 048
     Dates: start: 20060701
  2. NEURONTIN [Concomitant]
  3. LITHIUM CARBONATE [Concomitant]
  4. TOPAMAX [Concomitant]
  5. CLOZAPINE [Concomitant]
  6. SEROQUEL [Concomitant]
  7. MOBAN [Concomitant]
  8. XANAX [Concomitant]
  9. PROZAC [Concomitant]
  10. PROVIGIL [Concomitant]
  11. SYNTHROID [Concomitant]
  12. NEXIUM [Concomitant]
  13. MIRCETTE [Concomitant]

REACTIONS (3)
  - ABDOMINAL DISTENSION [None]
  - MYALGIA [None]
  - PARANOIA [None]
